FAERS Safety Report 13900939 (Version 1)
Quarter: 2017Q3

REPORT INFORMATION
  Report Type: Report from Study
  Country: DE (occurrence: DE)
  Receive Date: 20170824
  Receipt Date: 20170824
  Transmission Date: 20171127
  Serious: Yes (Other)
  Sender: FDA-Public Use
  Company Number: DE-BRISTOL-MYERS SQUIBB COMPANY-BMS-2015-061222

PATIENT
  Age: 44 Year
  Sex: Female

DRUGS (5)
  1. NOVALGIN [Concomitant]
     Active Substance: METAMIZOLE SODIUM
     Indication: OBESITY
     Dosage: UNK
     Route: 065
     Dates: start: 20150414
  2. FERINJECT [Concomitant]
     Active Substance: FERRIC CARBOXYMALTOSE
     Indication: OBESITY
     Dosage: 900 MG, UNK
     Route: 042
     Dates: start: 20170227
  3. MIRTAZAPIN [Concomitant]
     Active Substance: MIRTAZAPINE
     Indication: OBESITY
     Dosage: UNK
     Route: 065
     Dates: start: 20170613
  4. DASATINIB [Suspect]
     Active Substance: DASATINIB
     Indication: CHRONIC MYELOID LEUKAEMIA
     Dosage: 100 MG, QD
     Route: 065
  5. MESALAZIN [Concomitant]
     Active Substance: MESALAMINE
     Indication: OBESITY
     Dosage: UNK
     Route: 065
     Dates: start: 20160902

REACTIONS (7)
  - Depressed level of consciousness [Unknown]
  - Flushing [Unknown]
  - Fatigue [Unknown]
  - Dyspnoea [Unknown]
  - Headache [Recovered/Resolved]
  - Chills [Recovered/Resolved]
  - Gastrointestinal pain [Unknown]

NARRATIVE: CASE EVENT DATE: 20150428
